FAERS Safety Report 21087726 (Version 1)
Quarter: 2022Q3

REPORT INFORMATION
  Report Type: Spontaneous
  Country: US (occurrence: None)
  Receive Date: 20220714
  Receipt Date: 20220714
  Transmission Date: 20221026
  Serious: Yes (Death)
  Sender: FDA-Public Use
  Company Number: None

PATIENT
  Age: 67 Year
  Sex: Male
  Weight: 65.8 kg

DRUGS (1)
  1. ADENOSINE [Suspect]
     Active Substance: ADENOSINE
     Indication: Cardiac stress test
     Dosage: FREQUENCY : ONCE;?
     Route: 041
     Dates: start: 20220614, end: 20220614

REACTIONS (1)
  - Cardio-respiratory arrest [None]

NARRATIVE: CASE EVENT DATE: 20220614
